FAERS Safety Report 16475804 (Version 1)
Quarter: 2019Q2

REPORT INFORMATION
  Report Type: Spontaneous
  Country: US (occurrence: US)
  Receive Date: 20190625
  Receipt Date: 20190625
  Transmission Date: 20190711
  Serious: No
  Sender: FDA-Public Use
  Company Number: US-TEVA-2019-US-1061863

PATIENT
  Sex: Male

DRUGS (2)
  1. CLONAZEPAM (ACTAVIS) [Suspect]
     Active Substance: CLONAZEPAM
     Indication: EPILEPSY
     Dosage: 0.5 MG TO 1 MG IN THE MORNING
     Route: 065
  2. CLONAZEPAM (ACTAVIS) [Suspect]
     Active Substance: CLONAZEPAM
     Route: 065

REACTIONS (5)
  - Impaired work ability [Unknown]
  - Panic attack [Unknown]
  - Drug ineffective [Unknown]
  - Product substitution issue [Unknown]
  - Insomnia [Unknown]
